FAERS Safety Report 18623265 (Version 1)
Quarter: 2020Q4

REPORT INFORMATION
  Report Type: Spontaneous
  Country: US (occurrence: US)
  Receive Date: 20201216
  Receipt Date: 20201216
  Transmission Date: 20210114
  Serious: Yes (Hospitalization)
  Sender: FDA-Public Use
  Company Number: None

PATIENT
  Age: 61 Year
  Sex: Female
  Weight: 90 kg

DRUGS (2)
  1. ALIMTA [Suspect]
     Active Substance: PEMETREXED DISODIUM
     Dates: end: 20201209
  2. CISPLATIN. [Suspect]
     Active Substance: CISPLATIN
     Dates: end: 20201209

REACTIONS (7)
  - Nausea [None]
  - Embolism [None]
  - Hypercoagulation [None]
  - Dysarthria [None]
  - Cerebral ischaemia [None]
  - Vomiting [None]
  - Atrial fibrillation [None]

NARRATIVE: CASE EVENT DATE: 20201213
